FAERS Safety Report 16240958 (Version 1)
Quarter: 2019Q2

REPORT INFORMATION
  Report Type: Other
  Country: US (occurrence: US)
  Receive Date: 20190425
  Receipt Date: 20190425
  Transmission Date: 20190711
  Serious: Yes (Other)
  Sender: FDA-Public Use
  Company Number: US-STANDARD HOMEOPATHIC COMPANY-2066253

PATIENT
  Sex: Female

DRUGS (3)
  1. NUX VOMICA 30C [Suspect]
     Active Substance: HOMEOPATHICS
     Indication: INFLUENZA
     Route: 048
     Dates: start: 20190201, end: 20190412
  2. NUX VOMICA 30C [Suspect]
     Active Substance: HOMEOPATHICS
     Indication: STRESS
     Route: 048
     Dates: start: 20190201, end: 20190412
  3. RUTA GRAVEOLENS [Suspect]
     Active Substance: HOMEOPATHICS
     Route: 048
     Dates: start: 20190201, end: 20190412

REACTIONS (3)
  - Neoplasm [None]
  - Genital disorder female [Unknown]
  - Genital infection female [None]

NARRATIVE: CASE EVENT DATE: 20190212
